FAERS Safety Report 4383376-3 (Version None)
Quarter: 2004Q2

REPORT INFORMATION
  Report Type: 
  Country: None (occurrence: None)
  Receive Date: 20040618
  Receipt Date: 20040601
  Transmission Date: 20050107
  Serious: Yes (Disabling, Other)
  Sender: FDA-Public Use
  Company Number: USA040669017

PATIENT
  Age: 60 Year
  Sex: Female
  Weight: 61 kg

DRUGS (6)
  1. HUMALOG [Suspect]
     Dates: start: 19940101
  2. HUMULIN N [Suspect]
     Dates: start: 19480101, end: 20030101
  3. LANTUS [Concomitant]
  4. TIMOPTIC [Concomitant]
  5. MEVACOR [Concomitant]
  6. ASPIRIN [Concomitant]

REACTIONS (17)
  - ARTHRITIS [None]
  - BLINDNESS [None]
  - BLOOD GLUCOSE DECREASED [None]
  - BLOOD GLUCOSE INCREASED [None]
  - CARPAL TUNNEL SYNDROME [None]
  - CATARACT [None]
  - DEPRESSED LEVEL OF CONSCIOUSNESS [None]
  - DIABETIC RETINOPATHY [None]
  - EYE HAEMORRHAGE [None]
  - FALL [None]
  - GLAUCOMA [None]
  - HYPERHIDROSIS [None]
  - HYPERKERATOSIS [None]
  - MENOPAUSE [None]
  - PHARMACEUTICAL PRODUCT COMPLAINT [None]
  - RETINAL DETACHMENT [None]
  - VISUAL ACUITY REDUCED [None]
